FAERS Safety Report 8090488-X (Version None)
Quarter: 2012Q1

REPORT INFORMATION
  Report Type: 
  Country: None (occurrence: None)
  Receive Date: 20120129
  Receipt Date: 20111103
  Transmission Date: 20120608
  Serious: No
  Sender: FDA-Public Use
  Company Number: US-ABBOTT-11P-163-0871088-00

PATIENT
  Sex: Female

DRUGS (7)
  1. POTASSIUM [Concomitant]
     Indication: PRODUCT USED FOR UNKNOWN INDICATION
  2. HUMIRA [Suspect]
     Dosage: NOT REPORTED IF PATIENT HAD LOADING DOSE
     Dates: start: 20110901
  3. VITAMIN B-12 [Concomitant]
     Indication: PRODUCT USED FOR UNKNOWN INDICATION
  4. MULTI-VITAMINS [Concomitant]
     Indication: VITAMIN SUPPLEMENTATION
     Dosage: THE PATIENT IS NOT PREGNANT
  5. HUMIRA [Suspect]
     Indication: CROHN'S DISEASE
     Dosage: LOADING DOSE OF 4 - 40 MG INJECTIONS
     Dates: start: 20110201, end: 20110201
  6. IMURAN [Concomitant]
     Indication: CROHN'S DISEASE
  7. PERCOCET [Concomitant]
     Indication: PAIN

REACTIONS (4)
  - JOINT SWELLING [None]
  - RASH [None]
  - OEDEMA PERIPHERAL [None]
  - PAIN IN EXTREMITY [None]
